FAERS Safety Report 20392887 (Version 1)
Quarter: 2022Q1

REPORT INFORMATION
  Report Type: Spontaneous
  Country: IT (occurrence: IT)
  Receive Date: 20220128
  Receipt Date: 20220128
  Transmission Date: 20220423
  Serious: Yes (Hospitalization)
  Sender: FDA-Public Use
  Company Number: IT-JNJFOC-20220116607

PATIENT
  Age: 79 Year
  Sex: Male

DRUGS (4)
  1. DELORAZEPAM [Suspect]
     Active Substance: DELORAZEPAM
     Indication: Product used for unknown indication
     Dosage: 12 GTT DROPS (DELORAZEPAM ABC OS GTT 20ML- 12 DROPS)
     Route: 065
  2. QUETIAPINE [Suspect]
     Active Substance: QUETIAPINE
     Indication: Product used for unknown indication
     Dosage: QUETIAPINA 100 MG 60- 1CP
     Route: 065
  3. HALDOL [Suspect]
     Active Substance: HALOPERIDOL
     Indication: Product used for unknown indication
     Dosage: 5 GTT DROPS
     Route: 048
  4. CLOTHIAPINE [Suspect]
     Active Substance: CLOTHIAPINE
     Indication: Product used for unknown indication
     Dosage: 15 GTT DROPS (ENTUMIN OS GTT 10 ML 10%- 15 DROPS)
     Route: 065

REACTIONS (2)
  - Accidental exposure to product [Unknown]
  - Sluggishness [Unknown]
